FAERS Safety Report 12169256 (Version 11)
Quarter: 2024Q4

REPORT INFORMATION
  Report Type: Report from Study
  Country: US (occurrence: US)
  Receive Date: 20160310
  Receipt Date: 20241219
  Transmission Date: 20250115
  Serious: Yes (Hospitalization, Other)
  Sender: TAKEDA
  Company Number: US-SHIRE-US201602604

PATIENT
  Sex: Female
  Weight: 90 kg

DRUGS (24)
  1. TEDUGLUTIDE [Suspect]
     Active Substance: TEDUGLUTIDE
     Indication: Short-bowel syndrome
     Dosage: UNK
  2. TEDUGLUTIDE [Suspect]
     Active Substance: TEDUGLUTIDE
     Dosage: 3.8 MILLIGRAM, QD
  3. TEDUGLUTIDE [Suspect]
     Active Substance: TEDUGLUTIDE
     Dosage: 3.8 MILLIGRAM, QD
  4. TEDUGLUTIDE [Suspect]
     Active Substance: TEDUGLUTIDE
     Dosage: 3.8 MILLIGRAM, QD
  5. TEDUGLUTIDE [Suspect]
     Active Substance: TEDUGLUTIDE
     Dosage: 3.8 MILLIGRAM, QD
  6. ENTYVIO [Concomitant]
     Active Substance: VEDOLIZUMAB
     Dosage: 300 MILLIGRAM
  7. SODIUM CHLORIDE;WATER [Concomitant]
     Dosage: 0.9 PERCENT
  8. NORETHINDRONE ACETATE [Concomitant]
     Active Substance: NORETHINDRONE ACETATE
     Dosage: 5 MILLIGRAM
  9. TPN [Concomitant]
     Active Substance: AMINO ACIDS\DEXTROSE\ELECTROLYTES NOS\SOYBEAN OIL
     Dosage: UNK MILLIEQUIVALENT
  10. FAMOTIDINE [Concomitant]
     Active Substance: FAMOTIDINE
     Dosage: UNK
  11. ETHYL ALCOHOL [Concomitant]
     Active Substance: ALCOHOL
     Dosage: 100 PERCENT
  12. MONOETHANOLAMINE [Concomitant]
     Active Substance: MONOETHANOLAMINE
     Dosage: 100 PERCENT
  13. ESTRADIOL [Concomitant]
     Active Substance: ESTRADIOL
     Dosage: UNK
  14. VITAMIN D2 [Concomitant]
     Active Substance: ERGOCALCIFEROL
     Dosage: 1250 MICROGRAM
  15. ERGOCALCIFEROL [Concomitant]
     Active Substance: ERGOCALCIFEROL
     Dosage: UNK
  16. ENOXAPARIN SODIUM [Concomitant]
     Active Substance: ENOXAPARIN SODIUM
  17. CITRIC ACID MONOHYDRATE\SODIUM CITRATE [Concomitant]
     Active Substance: CITRIC ACID MONOHYDRATE\SODIUM CITRATE
  18. FONDAPARINUX SODIUM [Concomitant]
     Active Substance: FONDAPARINUX SODIUM
     Dosage: UNK
  19. EPINEPHRINE [Concomitant]
     Active Substance: EPINEPHRINE
     Dosage: UNK
  20. RECLAST [Concomitant]
     Active Substance: ZOLEDRONIC ACID
     Dosage: UNK
  21. TIZANIDINE HYDROCHLORIDE [Concomitant]
     Active Substance: TIZANIDINE HYDROCHLORIDE
     Dosage: 2 MILLIGRAM
  22. LEVOTHYROXINE [Concomitant]
     Active Substance: LEVOTHYROXINE
     Dosage: 25 MICROGRAM
  23. SALINE [Concomitant]
     Active Substance: SODIUM CHLORIDE
     Dosage: UNK
  24. STELARA [Concomitant]
     Active Substance: USTEKINUMAB
     Dosage: UNK

REACTIONS (16)
  - Rectal haemorrhage [Unknown]
  - Fistula [Recovering/Resolving]
  - Staphylococcal infection [Unknown]
  - Post procedural pulmonary embolism [Unknown]
  - Sepsis [Unknown]
  - Catheter site thrombosis [Unknown]
  - Pyrexia [Unknown]
  - Fall [Unknown]
  - Ankle fracture [Unknown]
  - Bone density decreased [Unknown]
  - Weight decreased [Recovered/Resolved]
  - Device leakage [Unknown]
  - Wound [Unknown]
  - Weight fluctuation [Unknown]
  - Product use issue [Not Recovered/Not Resolved]
  - Injection site erythema [Unknown]

NARRATIVE: CASE EVENT DATE: 20160101
